FAERS Safety Report 14014390 (Version 2)
Quarter: 2017Q4

REPORT INFORMATION
  Report Type: Spontaneous
  Country: GR (occurrence: GR)
  Receive Date: 20170927
  Receipt Date: 20171102
  Transmission Date: 20180321
  Serious: Yes (Hospitalization)
  Sender: FDA-Public Use
  Company Number: GR-ROCHE-1954967

PATIENT
  Age: 61 Year
  Sex: Female

DRUGS (8)
  1. FUNGOSTATIN [Concomitant]
     Active Substance: NYSTATIN
     Dosage: 1X2
     Route: 065
  2. DAKTARIN [Concomitant]
     Active Substance: MICONAZOLE NITRATE
     Dosage: 1X3
     Route: 065
  3. AVELOX [Concomitant]
     Active Substance: MOXIFLOXACIN HYDROCHLORIDE
     Dosage: 1X1
     Route: 065
  4. CALCIORAL (GREECE) [Concomitant]
     Dosage: 1X2
     Route: 065
  5. ROACTEMRA [Suspect]
     Active Substance: TOCILIZUMAB
     Indication: RHEUMATOID ARTHRITIS
     Route: 058
  6. ACTRAPID [Concomitant]
     Active Substance: INSULIN HUMAN
  7. ATROVENT [Concomitant]
     Active Substance: IPRATROPIUM BROMIDE
     Dosage: 1X3
     Route: 065
  8. PULMICORT TURBUHALER [Concomitant]
     Active Substance: BUDESONIDE
     Dosage: 1X2
     Route: 065

REACTIONS (5)
  - Erythema multiforme [Recovered/Resolved]
  - Stevens-Johnson syndrome [Recovered/Resolved]
  - Vulvitis [Recovering/Resolving]
  - Rectal haemorrhage [Recovered/Resolved]
  - Rash [Recovering/Resolving]
